FAERS Safety Report 15469465 (Version 1)
Quarter: 2018Q4

REPORT INFORMATION
  Report Type: Spontaneous
  Country: IT (occurrence: IT)
  Receive Date: 20181005
  Receipt Date: 20181005
  Transmission Date: 20190205
  Serious: Yes (Other)
  Sender: FDA-Public Use
  Company Number: IT-PFIZER INC-19574

PATIENT
  Age: 59 Year
  Sex: Female

DRUGS (3)
  1. FLUOROURACIL. [Concomitant]
     Active Substance: FLUOROURACIL
     Dosage: UNK
  2. CALCIUM FOLINATE [Concomitant]
     Active Substance: LEUCOVORIN CALCIUM
     Dosage: UNK
  3. OXALIPLATIN. [Suspect]
     Active Substance: OXALIPLATIN
     Dosage: 155 MG, UNK
     Route: 042
     Dates: start: 20080604, end: 20080604

REACTIONS (3)
  - Epigastric discomfort [Recovered/Resolved]
  - Pruritus [Recovered/Resolved with Sequelae]
  - Erythema [Recovered/Resolved]

NARRATIVE: CASE EVENT DATE: 20080604
